FAERS Safety Report 17083248 (Version 3)
Quarter: 2021Q2

REPORT INFORMATION
  Report Type: Spontaneous
  Country: US (occurrence: US)
  Receive Date: 20191127
  Receipt Date: 20210614
  Transmission Date: 20210716
  Serious: Yes (Life-Threatening, Disabling, Other)
  Sender: FDA-Public Use
  Company Number: US-SA-2019SA326778

PATIENT
  Age: 67 Year
  Sex: Male

DRUGS (4)
  1. DUPILUMAB [Suspect]
     Active Substance: DUPILUMAB
     Dosage: 300 MG, QOW
     Route: 058
     Dates: start: 201911
  2. BEPREVE [Concomitant]
     Active Substance: BEPOTASTINE BESILATE
     Indication: EYE ALLERGY
     Dosage: UNK
     Route: 047
     Dates: start: 2017
  3. DUPILUMAB [Suspect]
     Active Substance: DUPILUMAB
     Dosage: 600 MG, 1X
     Route: 058
     Dates: start: 20191109, end: 20191109
  4. BEPREVE [Concomitant]
     Active Substance: BEPOTASTINE BESILATE
     Indication: EYE PRURITUS

REACTIONS (17)
  - Bronchiectasis [Unknown]
  - Sputum discoloured [Unknown]
  - Visual impairment [Unknown]
  - Asthenia [Unknown]
  - Condition aggravated [Unknown]
  - Oral herpes [Recovering/Resolving]
  - Product dose omission issue [Unknown]
  - Incorrect dose administered [Unknown]
  - Chronic obstructive pulmonary disease [Recovering/Resolving]
  - Condition aggravated [Unknown]
  - Pyrexia [Unknown]
  - Increased viscosity of bronchial secretion [Unknown]
  - Eye irritation [Not Recovered/Not Resolved]
  - Lung disorder [Not Recovered/Not Resolved]
  - Herpes virus infection [Not Recovered/Not Resolved]
  - Eye pruritus [Unknown]
  - Pruritus [Unknown]

NARRATIVE: CASE EVENT DATE: 2019
